FAERS Safety Report 6225292-8 (Version None)
Quarter: 2009Q2

REPORT INFORMATION
  Report Type: 
  Country: None (occurrence: None)
  Receive Date: 20090612
  Receipt Date: 20090413
  Transmission Date: 20091009
  Serious: No
  Sender: FDA-Public Use
  Company Number: US-ABBOTT-09P-163-0568200-00

PATIENT
  Sex: Female
  Weight: 69.008 kg

DRUGS (4)
  1. HUMIRA [Suspect]
     Indication: PSORIASIS
     Route: 058
     Dates: start: 20080901
  2. VITAMIN B-12 [Suspect]
     Indication: DRUG USE FOR UNKNOWN INDICATION
     Route: 060
  3. PHENTERMINE [Concomitant]
     Indication: DECREASED APPETITE
  4. NASACORT HQ [Concomitant]
     Indication: SEASONAL ALLERGY

REACTIONS (1)
  - MENSTRUATION IRREGULAR [None]
